FAERS Safety Report 8314785-5 (Version None)
Quarter: 2012Q1

REPORT INFORMATION
  Report Type: 
  Country: None (occurrence: None)
  Receive Date: 20120315
  Receipt Date: 20110607
  Transmission Date: 20120608
  Serious: Yes (Other)
  Sender: FDA-Public Use
  Company Number: PHHY2011US39641

PATIENT
  Sex: Female

DRUGS (5)
  1. GILENYA [Suspect]
     Indication: MULTIPLE SCLEROSIS
     Dosage: 0.5 MG, QD
     Dates: start: 20101222
  2. EFFEXOR [Concomitant]
  3. LUNESTA [Concomitant]
  4. SYNTHROID [Concomitant]
  5. CRESTOR [Concomitant]

REACTIONS (8)
  - CHILLS [None]
  - VOMITING [None]
  - HERPES ZOSTER [None]
  - CHEST PAIN [None]
  - DIARRHOEA [None]
  - PLEURISY [None]
  - RASH VESICULAR [None]
  - PAIN [None]
